FAERS Safety Report 19257025 (Version 2)
Quarter: 2021Q3

REPORT INFORMATION
  Report Type: Spontaneous
  Country: US (occurrence: US)
  Receive Date: 20210513
  Receipt Date: 20210721
  Transmission Date: 20211014
  Serious: Yes (Other)
  Sender: FDA-Public Use
  Company Number: US-BEH-2021131595

PATIENT
  Age: 56 Year
  Sex: Female

DRUGS (1)
  1. HIZENTRA [Suspect]
     Active Substance: HUMAN IMMUNOGLOBULIN G
     Indication: IMMUNODEFICIENCY COMMON VARIABLE
     Dosage: 10 GRAM, QW
     Route: 058
     Dates: start: 20210302

REACTIONS (4)
  - Weight increased [Unknown]
  - Plantar fasciitis [Unknown]
  - Mobility decreased [Unknown]
  - Infusion site swelling [Unknown]

NARRATIVE: CASE EVENT DATE: 202104
